FAERS Safety Report 20838049 (Version 1)
Quarter: 2022Q2

REPORT INFORMATION
  Report Type: Spontaneous
  Country: US (occurrence: US)
  Receive Date: 20220517
  Receipt Date: 20220517
  Transmission Date: 20220721
  Serious: No
  Sender: FDA-Public Use
  Company Number: US-ALLERGAN-2203414US

PATIENT

DRUGS (2)
  1. KYBELLA [Suspect]
     Active Substance: DEOXYCHOLIC ACID
     Indication: Fat tissue increased
     Dosage: 2 VIALS (4 CC)
     Route: 058
     Dates: start: 20211005, end: 20211005
  2. KYBELLA [Suspect]
     Active Substance: DEOXYCHOLIC ACID
     Dosage: 2 VIALS (4 CC)
     Route: 058
     Dates: start: 20210715, end: 20210715

REACTIONS (1)
  - Drug ineffective [Unknown]
